FAERS Safety Report 23472062 (Version 1)
Quarter: 2024Q1

REPORT INFORMATION
  Report Type: Report from Study
  Country: BR (occurrence: BR)
  Receive Date: 20240202
  Receipt Date: 20240202
  Transmission Date: 20240409
  Serious: Yes (Hospitalization)
  Sender: FDA-Public Use
  Company Number: BR-BIOGEN-2021BI01005132

PATIENT
  Age: 54 Year
  Sex: Female
  Weight: 70 kg

DRUGS (5)
  1. TYSABRI [Suspect]
     Active Substance: NATALIZUMAB
     Indication: Multiple sclerosis
     Route: 050
     Dates: start: 20180702, end: 2021
  2. TYSABRI [Suspect]
     Active Substance: NATALIZUMAB
     Route: 050
     Dates: start: 2017, end: 2021
  3. DULOXETINE HYDROCHLORIDE [Suspect]
     Active Substance: DULOXETINE HYDROCHLORIDE
     Indication: Fatigue
     Route: 050
  4. BACLOFEN [Concomitant]
     Active Substance: BACLOFEN
     Indication: Product used for unknown indication
     Route: 050
  5. Mantidan (amantadine hydrochloride) [Concomitant]
     Indication: Fatigue
     Route: 050

REACTIONS (6)
  - COVID-19 [Recovered/Resolved]
  - Muscular weakness [Unknown]
  - Muscle spasms [Unknown]
  - Peripheral coldness [Unknown]
  - Abdominal pain upper [Recovered/Resolved]
  - Weight decreased [Recovered/Resolved]

NARRATIVE: CASE EVENT DATE: 20210401
